FAERS Safety Report 7531363-6 (Version None)
Quarter: 2011Q2

REPORT INFORMATION
  Report Type: 
  Country: None (occurrence: None)
  Receive Date: 20110608
  Receipt Date: 20110524
  Transmission Date: 20111010
  Serious: Yes (Other)
  Sender: FDA-Public Use
  Company Number: PHHY2011CA46650

PATIENT
  Sex: Female

DRUGS (1)
  1. ZOLEDRONIC ACID [Suspect]
     Indication: OSTEOPOROSIS
     Dosage: 5 MG, UNK
     Route: 042
     Dates: start: 20110418

REACTIONS (11)
  - FALL [None]
  - HYPERTENSION [None]
  - ASTHENIA [None]
  - SNEEZING [None]
  - CONTUSION [None]
  - FACE INJURY [None]
  - DEVICE BREAKAGE [None]
  - AMNESIA [None]
  - COUGH [None]
  - CHEST PAIN [None]
  - SYNCOPE [None]
